FAERS Safety Report 15635698 (Version 1)
Quarter: 2018Q4

REPORT INFORMATION
  Report Type: Spontaneous
  Country: GB (occurrence: GB)
  Receive Date: 20181120
  Receipt Date: 20181120
  Transmission Date: 20190205
  Serious: Yes (Other)
  Sender: FDA-Public Use
  Company Number: GB-TEVA-2018-GB-976480

PATIENT
  Age: 18 Year
  Sex: Female

DRUGS (1)
  1. CITALOPRAM [Suspect]
     Active Substance: CITALOPRAM HYDROBROMIDE
     Indication: DEPRESSION
     Route: 048
     Dates: start: 201702, end: 201801

REACTIONS (3)
  - Decreased appetite [Recovering/Resolving]
  - Abnormal weight gain [Recovering/Resolving]
  - Asthenia [Recovered/Resolved]
